FAERS Safety Report 16638824 (Version 1)
Quarter: 2019Q3

REPORT INFORMATION
  Report Type: Spontaneous
  Country: GB (occurrence: GB)
  Receive Date: 20190726
  Receipt Date: 20190726
  Transmission Date: 20191004
  Serious: Yes (Other)
  Sender: FDA-Public Use
  Company Number: GB-TEVA-2019-GB-1083439

PATIENT
  Age: 32 Year
  Sex: Female
  Weight: 59 kg

DRUGS (5)
  1. DESOGESTREL [Concomitant]
     Active Substance: DESOGESTREL
     Dosage: 1DOSAGE FORMS PER DAY
     Dates: start: 20190423
  2. NITROFURANTOIN. [Suspect]
     Active Substance: NITROFURANTOIN
     Dosage: 200MG PER DAY
     Dates: start: 20190611
  3. ULIPRISTAL ACETATE [Concomitant]
     Active Substance: ULIPRISTAL ACETATE
     Dosage: AS DIRECTED
     Dates: start: 20190423, end: 20190424
  4. TRIMETHOPRIM. [Concomitant]
     Active Substance: TRIMETHOPRIM
     Dosage: 2DOSAGE FORMS PER DAY
     Dates: start: 20190613, end: 20190616
  5. SERTRALINE [Concomitant]
     Active Substance: SERTRALINE HYDROCHLORIDE
     Dates: start: 20181012

REACTIONS (4)
  - Dizziness [Recovered/Resolved]
  - Malaise [Unknown]
  - Muscle spasms [Unknown]
  - Nausea [Unknown]
